FAERS Safety Report 4943181-3 (Version None)
Quarter: 2006Q1

REPORT INFORMATION
  Report Type: 
  Country: None (occurrence: None)
  Receive Date: 20060314
  Receipt Date: 20051223
  Transmission Date: 20060701
  Serious: Yes (Other)
  Sender: FDA-Public Use
  Company Number: US-MERCK-0512USA03775

PATIENT
  Age: 41 Year
  Sex: Male
  Weight: 90 kg

DRUGS (17)
  1. VIOXX [Suspect]
     Indication: ARTHRITIS
     Route: 048
     Dates: start: 19990915, end: 20010720
  2. LEVOXYL [Concomitant]
     Route: 048
  3. VANTIN [Concomitant]
     Route: 048
     Dates: start: 19991220, end: 19991201
  4. ALLEGRA [Concomitant]
     Route: 048
  5. MECLIZINE [Concomitant]
     Route: 065
  6. PEPCID [Concomitant]
     Route: 065
  7. SINGULAIR [Concomitant]
     Route: 065
  8. BACTROBAN [Concomitant]
     Route: 061
  9. CORTISPORIN [Concomitant]
     Route: 001
  10. CORDRAN [Concomitant]
     Route: 061
  11. AMITRIPTYLINE HYDROCHLORIDE [Concomitant]
     Route: 048
  12. FLONASE [Concomitant]
     Route: 055
  13. PRILOSEC [Concomitant]
     Route: 065
  14. LASIX [Concomitant]
     Route: 065
     Dates: start: 20000802
  15. MICRO-K [Concomitant]
     Route: 065
     Dates: start: 20000802
  16. NEXIUM [Concomitant]
     Route: 065
  17. PROBENECID [Concomitant]
     Route: 065

REACTIONS (13)
  - ANXIETY [None]
  - ARTERIOSCLEROSIS CORONARY ARTERY [None]
  - CEREBROVASCULAR ACCIDENT [None]
  - CHEST PAIN [None]
  - DERMATITIS [None]
  - DIZZINESS [None]
  - FATIGUE [None]
  - GASTROOESOPHAGEAL REFLUX DISEASE [None]
  - GOUT [None]
  - HYPOAESTHESIA [None]
  - MALAISE [None]
  - PARAESTHESIA [None]
  - SYNCOPE [None]
